FAERS Safety Report 11130475 (Version 1)
Quarter: 2015Q2

REPORT INFORMATION
  Report Type: Spontaneous
  Country: US (occurrence: None)
  Receive Date: 20150521
  Receipt Date: 20150521
  Transmission Date: 20150821
  Serious: Yes (Death, Hospitalization)
  Sender: FDA-Public Use
  Company Number: None

PATIENT
  Age: 16 Year
  Sex: Female
  Weight: 57.6 kg

DRUGS (17)
  1. CYTARABINE. [Suspect]
     Active Substance: CYTARABINE
     Dosage: TOTAL DOSE INCLUDES THE ARAC IT GIVEN ON DAY 1 AND THE HD ARAC GIVEN ON DAYS 1-4.?
     Dates: end: 20100402
  2. VORICONAZOLE. [Concomitant]
     Active Substance: VORICONAZOLE
  3. CARBOGLU [Concomitant]
  4. VANCOMYCIN [Concomitant]
     Active Substance: VANCOMYCIN
  5. OVRAL [Concomitant]
     Active Substance: ETHINYL ESTRADIOL\NORGESTREL
  6. GEMTUZUMAB OZOGAMICIN [Suspect]
     Active Substance: GEMTUZUMAB OZOGAMICIN
     Dates: end: 20100405
  7. FLAGYL [Concomitant]
     Active Substance: METRONIDAZOLE\METRONIDAZOLE HYDROCHLORIDE
  8. MEROPENEM. [Concomitant]
     Active Substance: MEROPENEM
  9. DOXYCYCINE [Concomitant]
  10. G-CSF [Concomitant]
     Active Substance: GRANULOCYTE COLONY-STIMULATING FACTOR NOS
  11. KETAMINE [Concomitant]
     Active Substance: KETAMINE
  12. ATIVAN [Concomitant]
     Active Substance: LORAZEPAM
  13. HYDROMORPHONE [Concomitant]
     Active Substance: HYDROMORPHONE
  14. SOMATROPIN [Suspect]
     Active Substance: SOMATROPIN
  15. MITOXANTRONE HYDROCHLORIDE. [Suspect]
     Active Substance: MITOXANTRONE HYDROCHLORIDE
     Dates: end: 20100404
  16. LACTULOSE. [Concomitant]
     Active Substance: LACTULOSE
  17. LUPRON [Concomitant]
     Active Substance: LEUPROLIDE ACETATE

REACTIONS (7)
  - Pyrexia [None]
  - Haemodialysis [None]
  - Confusional state [None]
  - Hyperammonaemia [None]
  - Hepatic necrosis [None]
  - Depressed level of consciousness [None]
  - Pancytopenia [None]

NARRATIVE: CASE EVENT DATE: 20100512
